FAERS Safety Report 15953879 (Version 1)
Quarter: 2019Q1

REPORT INFORMATION
  Report Type: Spontaneous
  Country: GB (occurrence: GB)
  Receive Date: 20190212
  Receipt Date: 20190212
  Transmission Date: 20190417
  Serious: Yes (Death, Other)
  Sender: FDA-Public Use
  Company Number: GB-MYLANLABS-2019M1011696

PATIENT
  Age: 6 Year
  Sex: Female

DRUGS (1)
  1. QUININE [Suspect]
     Active Substance: QUININE
     Indication: PRODUCT USED FOR UNKNOWN INDICATION
     Dosage: 8 GRAM, TOTAL (4 G, TWICE)

REACTIONS (5)
  - Overdose [Fatal]
  - Drug abuse [Unknown]
  - Toxicity to various agents [Fatal]
  - Intentional product misuse [Unknown]
  - Medication error [Unknown]
